FAERS Safety Report 14466055 (Version 1)
Quarter: 2018Q1

REPORT INFORMATION
  Report Type: Spontaneous
  Country: CN (occurrence: CN)
  Receive Date: 20180131
  Receipt Date: 20180131
  Transmission Date: 20180509
  Serious: Yes (Life-Threatening, Other)
  Sender: FDA-Public Use
  Company Number: CN-ACCORD-062972

PATIENT
  Age: 17 Year
  Sex: Male

DRUGS (9)
  1. GEMCITABINE/GEMCITABINE HYDROCHLORIDE [Suspect]
     Active Substance: GEMCITABINE\GEMCITABINE HYDROCHLORIDE
     Indication: PERIPHERAL PRIMITIVE NEUROECTODERMAL TUMOUR OF SOFT TISSUE
     Dosage: 2ND-LINE CHEMOTHERAPY OF GP
     Dates: start: 20150708, end: 20150826
  2. CISPLATIN. [Suspect]
     Active Substance: CISPLATIN
     Indication: PERIPHERAL PRIMITIVE NEUROECTODERMAL TUMOUR OF SOFT TISSUE
     Dosage: 2ND-LINE CHEMOTHERAPY OF GP
     Dates: start: 20150708, end: 20150826
  3. CYCLOPHOSPHAMIDE/CYCLOPHOSPHAMIDE MONOHYDRATE [Suspect]
     Active Substance: CYCLOPHOSPHAMIDE
     Indication: PERIPHERAL PRIMITIVE NEUROECTODERMAL TUMOUR OF SOFT TISSUE
     Dates: start: 20140813, end: 20150202
  4. IRINOTECAN [Suspect]
     Active Substance: IRINOTECAN
     Indication: PERIPHERAL PRIMITIVE NEUROECTODERMAL TUMOUR OF SOFT TISSUE
     Dosage: TI THERAPY
     Dates: start: 20150903, end: 20151015
  5. DOXORUBICIN [Suspect]
     Active Substance: DOXORUBICIN
     Indication: PERIPHERAL PRIMITIVE NEUROECTODERMAL TUMOUR OF SOFT TISSUE
     Dates: start: 20140813, end: 20150202
  6. TEMOZOLOMIDE. [Suspect]
     Active Substance: TEMOZOLOMIDE
     Indication: PERIPHERAL PRIMITIVE NEUROECTODERMAL TUMOUR OF SOFT TISSUE
     Dosage: TI THERAPY
     Dates: start: 20150903, end: 20151015
  7. VINCRISTINE [Suspect]
     Active Substance: VINCRISTINE
     Indication: PERIPHERAL PRIMITIVE NEUROECTODERMAL TUMOUR OF SOFT TISSUE
     Dates: start: 20140813, end: 20150202
  8. IFOSFAMIDE. [Suspect]
     Active Substance: IFOSFAMIDE
     Indication: PERIPHERAL PRIMITIVE NEUROECTODERMAL TUMOUR OF SOFT TISSUE
     Dates: start: 20140813, end: 20150202
  9. ETOPOSIDE. [Suspect]
     Active Substance: ETOPOSIDE
     Indication: PERIPHERAL PRIMITIVE NEUROECTODERMAL TUMOUR OF SOFT TISSUE
     Dates: start: 20140813, end: 20150202

REACTIONS (1)
  - Drug ineffective [Unknown]
